FAERS Safety Report 5990654-0 (Version None)
Quarter: 2008Q4

REPORT INFORMATION
  Report Type: 
  Country: None (occurrence: None)
  Receive Date: 20081209
  Receipt Date: 20081201
  Transmission Date: 20090506
  Serious: Yes (Hospitalization)
  Sender: FDA-Public Use
  Company Number: KV200800754

PATIENT
  Age: 91 Year
  Sex: Female

DRUGS (8)
  1. MORPHINE SULFATE INJ [Suspect]
     Indication: BACK PAIN
     Dosage: 15 MG, ONE TABLET EVERY 12-24 HRS., ORAL
     Route: 048
     Dates: start: 20080725, end: 20080101
  2. PANTOPRAZOLE SODIUM [Concomitant]
  3. LEVOTHYROXINE SODIUM [Concomitant]
  4. LOVASTATIN [Concomitant]
  5. DILTIAZEM (CILTIAZEM HYDROCHLORIDE) [Concomitant]
  6. VICODIN [Concomitant]
  7. VITAMINS [Concomitant]
  8. ASPIRIN [Concomitant]

REACTIONS (4)
  - DIZZINESS [None]
  - FALL [None]
  - PRODUCT QUALITY ISSUE [None]
  - RIB FRACTURE [None]
